FAERS Safety Report 10142821 (Version 1)
Quarter: 2014Q2

REPORT INFORMATION
  Report Type: Spontaneous
  Country: FR (occurrence: None)
  Receive Date: 20140428
  Receipt Date: 20140428
  Transmission Date: 20141212
  Serious: Yes (Death)
  Sender: FDA-Public Use
  Company Number: SYM-2014-20133

PATIENT
  Sex: 0

DRUGS (4)
  1. FLUOROURACIL [Suspect]
     Indication: OESOPHAGEAL CARCINOMA
     Route: 040
  2. OXALIPLATIN [Suspect]
     Indication: OESOPHAGEAL CARCINOMA
     Route: 040
  3. LEUCOVORIN [Suspect]
     Indication: OESOPHAGEAL CARCINOMA
     Route: 040
  4. UNSPECIFIED [Suspect]
     Indication: OESOPHAGEAL CARCINOMA

REACTIONS (2)
  - Lung disorder [None]
  - Malnutrition [None]
